FAERS Safety Report 7929197-3 (Version None)
Quarter: 2011Q4

REPORT INFORMATION
  Report Type: 
  Country: None (occurrence: None)
  Receive Date: 20111120
  Receipt Date: 20111026
  Transmission Date: 20120403
  Serious: No
  Sender: FDA-Public Use
  Company Number: US-ROXANE LABORATORIES, INC.-2011-RO-01544RO

PATIENT
  Sex: Female
  Weight: 53 kg

DRUGS (6)
  1. FLUTICASONE PROPIONATE [Suspect]
     Indication: HYPERSENSITIVITY
     Route: 045
     Dates: start: 19990101, end: 20111017
  2. WARFARIN SODIUM [Suspect]
     Indication: ANTICOAGULANT THERAPY
  3. METOPROLOL TARTRATE [Concomitant]
     Indication: CARDIAC DISORDER
     Dosage: 100 MG
     Dates: start: 20090101
  4. ALLEGRA [Concomitant]
     Indication: HYPERSENSITIVITY
     Dosage: 180 MG
     Dates: start: 19990101
  5. COUMADIN [Concomitant]
     Indication: CARDIAC DISORDER
     Dosage: 5 MG
     Dates: start: 20090101
  6. MULTAQ [Concomitant]
     Indication: ATRIAL FIBRILLATION
     Dosage: 800 MG
     Dates: start: 20100101

REACTIONS (1)
  - EPISTAXIS [None]
